FAERS Safety Report 11238008 (Version 3)
Quarter: 2015Q3

REPORT INFORMATION
  Report Type: Spontaneous
  Country: US (occurrence: US)
  Receive Date: 20150703
  Receipt Date: 20150729
  Transmission Date: 20151125
  Serious: Yes (Life-Threatening, Hospitalization, Disabling, Other)
  Sender: FDA-Public Use
  Company Number: US-009507513-1507USA000679

PATIENT
  Age: 55 Year
  Sex: Female
  Weight: 75.74 kg

DRUGS (7)
  1. JANUVIA [Suspect]
     Active Substance: SITAGLIPTIN PHOSPHATE
     Indication: DIABETES MELLITUS
     Dosage: 100 MG, ONCE A DAY
     Route: 048
     Dates: start: 20150624
  2. NOVOLOG [Concomitant]
     Active Substance: INSULIN ASPART
     Dosage: 100UNIT/ML INJECTOR PEN AS DIRECTED FOR SLIDING SCALE
     Route: 058
  3. HYZAAR [Concomitant]
     Active Substance: HYDROCHLOROTHIAZIDE\LOSARTAN POTASSIUM
     Dosage: 25 MG DAILY
     Route: 048
  4. LEVEMIR [Concomitant]
     Active Substance: INSULIN DETEMIR
     Dosage: 13 UNITS, AT HOUR OF SLEEP DAILY
     Route: 058
  5. LIPITOR [Concomitant]
     Active Substance: ATORVASTATIN CALCIUM
     Dosage: UNK
     Route: 048
  6. OMEGA-3 MARINE TRIGLYCERIDES [Concomitant]
     Active Substance: FISH OIL
     Dosage: 1 GRAM, HS
     Route: 048
  7. JANUMET [Suspect]
     Active Substance: METFORMIN HYDROCHLORIDE\SITAGLIPTIN PHOSPHATE
     Indication: DIABETES MELLITUS
     Dosage: STRENGTH 50/1000MG, 50/1000MG, TWICE DAILY
     Route: 048
     Dates: start: 201302, end: 20150623

REACTIONS (13)
  - Hyponatraemia [Recovering/Resolving]
  - Malnutrition [Unknown]
  - Hyperlipidaemia [Unknown]
  - Transaminases increased [Unknown]
  - Dysuria [Unknown]
  - Diabetes mellitus inadequate control [Not Recovered/Not Resolved]
  - Jaundice cholestatic [Not Recovered/Not Resolved]
  - Vision blurred [Unknown]
  - Metastases to liver [Not Recovered/Not Resolved]
  - Adrenal mass [Unknown]
  - Acute kidney injury [Unknown]
  - Lymphoma [Not Recovered/Not Resolved]
  - Pancreatic carcinoma [Not Recovered/Not Resolved]

NARRATIVE: CASE EVENT DATE: 201506
